FAERS Safety Report 8586036-8 (Version None)
Quarter: 2012Q3

REPORT INFORMATION
  Report Type: 
  Country: None (occurrence: None)
  Receive Date: 20120810
  Receipt Date: 20120808
  Transmission Date: 20120928
  Serious: Yes (Other)
  Sender: FDA-Public Use
  Company Number: US-PFIZER INC-2012194154

PATIENT
  Age: 71 Year
  Sex: Female
  Weight: 53.061 kg

DRUGS (2)
  1. FLECTOR [Suspect]
     Indication: ARTHRALGIA
     Dosage: UNK, 2X/DAY
     Dates: start: 20120801, end: 20120805
  2. SYNTHROID [Concomitant]
     Indication: POSTOPERATIVE CARE
     Dosage: UNK

REACTIONS (7)
  - APPLICATION SITE ERYTHEMA [None]
  - ASTHMA [None]
  - PYREXIA [None]
  - THROAT TIGHTNESS [None]
  - DYSPNOEA [None]
  - CHILLS [None]
  - COLD SWEAT [None]
